FAERS Safety Report 14670248 (Version 1)
Quarter: 2018Q1

REPORT INFORMATION
  Report Type: Spontaneous
  Country: IT (occurrence: IT)
  Receive Date: 20180322
  Receipt Date: 20180322
  Transmission Date: 20180509
  Serious: Yes (Hospitalization, Other)
  Sender: FDA-Public Use
  Company Number: IT-BAYER-2018-049803

PATIENT
  Age: 52 Year
  Sex: Male

DRUGS (3)
  1. TICAGRELOR. [Concomitant]
     Active Substance: TICAGRELOR
     Indication: MYOCARDIAL INFARCTION
  2. POTASSIUM CHLORIDE. [Concomitant]
     Active Substance: POTASSIUM CHLORIDE
  3. ACETYLSALICYLIC ACID (} 100 MG) [Suspect]
     Active Substance: ASPIRIN
     Indication: MYOCARDIAL INFARCTION

REACTIONS (6)
  - Ulcer [Recovered/Resolved]
  - Intestinal obstruction [Recovered/Resolved]
  - Intestinal diaphragm disease [Recovered/Resolved]
  - Intestinal haemorrhage [Recovered/Resolved]
  - Anaemia [Recovered/Resolved]
  - Enteritis [Recovered/Resolved]
